FAERS Safety Report 4293494-6 (Version None)
Quarter: 2004Q1

REPORT INFORMATION
  Report Type: 
  Country: None (occurrence: None)
  Receive Date: 20040126
  Receipt Date: 20030820
  Transmission Date: 20041129
  Serious: No
  Sender: FDA-Public Use
  Company Number: USA030844874

PATIENT
  Age: 60 Year
  Sex: Female
  Weight: 44 kg

DRUGS (9)
  1. FORTEO [Suspect]
     Dates: start: 20030801
  2. DARVOCET-N 100 [Concomitant]
  3. NEURONTIN [Concomitant]
  4. HYDROCORTISONE [Concomitant]
  5. FLORINEF [Concomitant]
  6. ATENOLOL [Concomitant]
  7. CALCIUM [Concomitant]
  8. FOSAMAX [Concomitant]
  9. ACTONEL [Concomitant]

REACTIONS (2)
  - BONE PAIN [None]
  - CHILLS [None]
